FAERS Safety Report 15597258 (Version 1)
Quarter: 2018Q4

REPORT INFORMATION
  Report Type: Spontaneous
  Country: US (occurrence: US)
  Receive Date: 20181107
  Receipt Date: 20181107
  Transmission Date: 20190205
  Serious: Yes (Life-Threatening)
  Sender: FDA-Public Use
  Company Number: None

PATIENT
  Age: 47 Year
  Sex: Female
  Weight: 89.1 kg

DRUGS (1)
  1. LISINOPRIL. [Suspect]
     Active Substance: LISINOPRIL
     Indication: HYPERTENSION
     Dosage: ?          QUANTITY:30 TABLET(S);?
     Route: 048

REACTIONS (5)
  - Angioedema [None]
  - Chest pain [None]
  - Swelling face [None]
  - Lip swelling [None]
  - Urticaria [None]

NARRATIVE: CASE EVENT DATE: 20181106
